FAERS Safety Report 25425119 (Version 2)
Quarter: 2025Q3

REPORT INFORMATION
  Report Type: Spontaneous
  Country: JP (occurrence: JP)
  Receive Date: 20250611
  Receipt Date: 20250709
  Transmission Date: 20251020
  Serious: Yes (Hospitalization, Other)
  Sender: TAKEDA
  Company Number: JP-SA-2025SA152237

PATIENT
  Age: 3 Decade
  Sex: Male

DRUGS (1)
  1. ELAPRASE [Suspect]
     Active Substance: IDURSULFASE
     Indication: Mucopolysaccharidosis II
     Dosage: 15 MILLIGRAM, QD
     Dates: start: 200710, end: 202502

REACTIONS (3)
  - Pancreatitis acute [Not Recovered/Not Resolved]
  - Pneumonia [Recovered/Resolved]
  - Nasopharyngitis [Unknown]

NARRATIVE: CASE EVENT DATE: 20250201
